FAERS Safety Report 5576581-1 (Version None)
Quarter: 2007Q4

REPORT INFORMATION
  Report Type: 
  Country: None (occurrence: None)
  Receive Date: 20071228
  Receipt Date: 20071030
  Transmission Date: 20080405
  Serious: No
  Sender: FDA-Public Use
  Company Number: A0690538A

PATIENT
  Age: 72 Year
  Sex: Male

DRUGS (3)
  1. FLOVENT [Suspect]
     Indication: ASTHMA
     Dosage: 2PUFF TWICE PER DAY
     Route: 055
     Dates: start: 20050501
  2. CLARINEX [Concomitant]
  3. ALBUTEROL [Concomitant]

REACTIONS (2)
  - APHONIA [None]
  - VOCAL CORD DISORDER [None]
